FAERS Safety Report 12613670 (Version 1)
Quarter: 2016Q3

REPORT INFORMATION
  Report Type: Spontaneous
  Country: US (occurrence: None)
  Receive Date: 20160801
  Receipt Date: 20160801
  Transmission Date: 20161109
  Serious: Yes (Other)
  Sender: FDA-Public Use
  Company Number: None

PATIENT
  Age: 48 Year
  Sex: Male
  Weight: 158.76 kg

DRUGS (4)
  1. CPAP [Concomitant]
     Active Substance: DEVICE
  2. RITALIN SR [Concomitant]
     Active Substance: METHYLPHENIDATE HYDROCHLORIDE
  3. LAPBAND [Concomitant]
  4. NEXIUM [Suspect]
     Active Substance: ESOMEPRAZOLE MAGNESIUM
     Indication: DYSPEPSIA
     Route: 048
     Dates: start: 20150701, end: 20160630

REACTIONS (7)
  - Dyspepsia [None]
  - Heart rate irregular [None]
  - Blood magnesium decreased [None]
  - Ventricular extrasystoles [None]
  - Rebound effect [None]
  - Ventricular tachycardia [None]
  - Chest discomfort [None]

NARRATIVE: CASE EVENT DATE: 20160629
